FAERS Safety Report 4924748-5 (Version None)
Quarter: 2006Q1

REPORT INFORMATION
  Report Type: 
  Country: None (occurrence: None)
  Receive Date: 20060227
  Receipt Date: 20060215
  Transmission Date: 20060701
  Serious: Yes (Death)
  Sender: FDA-Public Use
  Company Number: JP-MERCK-0602USA05162

PATIENT
  Age: 56 Year
  Sex: Male
  Weight: 68 kg

DRUGS (6)
  1. PEPCID [Suspect]
     Route: 048
     Dates: start: 20040420
  2. ETOPOSIDE [Concomitant]
     Route: 065
     Dates: start: 20040422
  3. VINCRISTINE SULFATE [Concomitant]
     Route: 065
     Dates: start: 20040422
  4. DOXORUBICIN [Concomitant]
     Route: 065
     Dates: start: 20040422
  5. DEXAMETHASONE [Concomitant]
     Route: 065
     Dates: start: 20040422
  6. LASIX [Concomitant]
     Indication: POLYURIA
     Route: 065
     Dates: start: 20040401

REACTIONS (6)
  - AMYLOIDOSIS [None]
  - DIARRHOEA [None]
  - GASTROENTERITIS BACILLUS [None]
  - HYPOXIA [None]
  - SEPTIC SHOCK [None]
  - VOMITING [None]
